FAERS Safety Report 9190439 (Version 2)
Quarter: 2012Q4

REPORT INFORMATION
  Report Type: 
  Country: US (occurrence: US)
  Receive Date: 20121220
  Receipt Date: 20121221
  Transmission Date: 20130627
  Serious: Yes (Hospitalization, Other)
  Sender: FDA-Public Use
  Company Number: US-RB-047873-12

PATIENT
  Age: 0 None
  Sex: Male

DRUGS (4)
  1. SUBOXONE TABLET [Suspect]
     Indication: DRUG DEPENDENCE
     Dosage: Mother discontinued the use in ^April/May^
     Route: 064
     Dates: start: 20120201, end: 2012
  2. BUPRENORPHINE [Suspect]
     Indication: DRUG DEPENDENCE
     Dosage: Mother switched to generic buprenorphine in ^April/May^
     Route: 064
     Dates: start: 2012, end: 20121011
  3. NICOTINE [Suspect]
     Indication: NICOTINE DEPENDENCE
     Dosage: 10 cigarettes/daily
     Route: 064
     Dates: start: 20120201, end: 20121011
  4. PRENATAL [Concomitant]
     Indication: PREGNANCY
     Dosage: 1 tablet/daily
     Route: 064
     Dates: start: 2012, end: 20121011

REACTIONS (5)
  - Foetal exposure during pregnancy [Recovered/Resolved]
  - Premature baby [Recovered/Resolved]
  - Low birth weight baby [Recovered/Resolved]
  - Maternal drugs affecting foetus [None]
  - Foetal growth restriction [None]
